FAERS Safety Report 7049575-7 (Version None)
Quarter: 2010Q4

REPORT INFORMATION
  Report Type: 
  Country: None (occurrence: None)
  Receive Date: 20101013
  Receipt Date: 20100902
  Transmission Date: 20110411
  Serious: Yes (Other)
  Sender: FDA-Public Use
  Company Number: UK-ACCORD-003423

PATIENT
  Age: 55 Year
  Sex: Male

DRUGS (8)
  1. IRINOTECAN HCL [Suspect]
     Indication: COLORECTAL CANCER METASTATIC
  2. OXALIPLATIN [Suspect]
     Indication: COLORECTAL CANCER METASTATIC
     Dosage: 85.00-MG/M2- / INTRAVENOUS (NOT OTHERWISE SPECIFIED)
     Route: 042
  3. GEMCITABINE [Suspect]
     Indication: COLORECTAL CANCER METASTATIC
  4. FLUOROURACIL [Suspect]
     Indication: COLORECTAL CANCER METASTATIC
     Dosage: 2400.00-MG/M2-1.00PER-2.0WEEKS
  5. CETUXIMAB(CETUXIMAB) [Suspect]
     Indication: COLORECTAL CANCER METASTATIC
     Dosage: 250.00-MG/M2-1.00PER-1.0WEEKS
  6. BEVACIZUMAB(BEVACIZUMAB) [Suspect]
     Indication: COLORECTAL CANCER METASTATIC
     Dosage: 5.00MG/KG-INTRAVENOUS (NOT OTHERWISE SPECIFIED)
     Route: 042
  7. LEUCOVORIN(LEUCOVORIN) [Concomitant]
  8. CAPECITABINE (CAPECTABINE) [Suspect]
     Indication: COLORECTAL CANCER METASTATIC

REACTIONS (11)
  - COLORECTAL CANCER METASTATIC [None]
  - CONJUNCTIVITIS [None]
  - DIARRHOEA [None]
  - GINGIVAL BLEEDING [None]
  - MALIGNANT NEOPLASM PROGRESSION [None]
  - NAUSEA [None]
  - NEUROPATHY PERIPHERAL [None]
  - OFF LABEL USE [None]
  - PALMAR-PLANTAR ERYTHRODYSAESTHESIA SYNDROME [None]
  - PERIPHERAL COLDNESS [None]
  - VOMITING [None]
